FAERS Safety Report 25413315 (Version 1)
Quarter: 2025Q2

REPORT INFORMATION
  Report Type: Spontaneous
  Country: DE (occurrence: DE)
  Receive Date: 20250609
  Receipt Date: 20250609
  Transmission Date: 20250716
  Serious: Yes (Hospitalization)
  Sender: SANDOZ
  Company Number: DE-SANDOZ-SDZ2025DE039750

PATIENT
  Sex: Female

DRUGS (19)
  1. CELECOXIB [Suspect]
     Active Substance: CELECOXIB
     Route: 065
     Dates: start: 20220815
  2. CELECOXIB [Suspect]
     Active Substance: CELECOXIB
     Route: 065
     Dates: start: 20240515, end: 20240915
  3. CELECOXIB [Suspect]
     Active Substance: CELECOXIB
     Indication: Psoriatic arthropathy
     Route: 065
     Dates: start: 20210520, end: 20220615
  4. CELECOXIB [Suspect]
     Active Substance: CELECOXIB
     Route: 065
     Dates: start: 20220815
  5. IBUPROFEN [Suspect]
     Active Substance: IBUPROFEN
     Indication: Psoriatic arthropathy
     Route: 065
     Dates: start: 20180909, end: 20190315
  6. MELOXICAM [Suspect]
     Active Substance: MELOXICAM
     Indication: Psoriatic arthropathy
     Route: 065
     Dates: start: 20170401, end: 20180918
  7. METHOTREXATE [Suspect]
     Active Substance: METHOTREXATE
     Indication: Psoriatic arthropathy
     Route: 065
     Dates: start: 20040101
  8. METHOTREXATE [Suspect]
     Active Substance: METHOTREXATE
     Route: 065
     Dates: start: 20240323
  9. METHOTREXATE [Suspect]
     Active Substance: METHOTREXATE
     Route: 065
     Dates: start: 20040101
  10. METHOTREXATE [Suspect]
     Active Substance: METHOTREXATE
     Route: 065
     Dates: start: 20210121, end: 20220901
  11. METHOTREXATE [Suspect]
     Active Substance: METHOTREXATE
     Route: 065
     Dates: start: 20040101
  12. STELARA [Suspect]
     Active Substance: USTEKINUMAB
     Indication: Psoriatic arthropathy
     Route: 065
     Dates: start: 20171120, end: 20180610
  13. STELARA [Suspect]
     Active Substance: USTEKINUMAB
     Route: 065
     Dates: start: 20181023, end: 20190830
  14. STELARA [Suspect]
     Active Substance: USTEKINUMAB
     Route: 065
     Dates: start: 20200215
  15. STELARA [Suspect]
     Active Substance: USTEKINUMAB
     Route: 065
     Dates: start: 20210121, end: 20210615
  16. STELARA [Suspect]
     Active Substance: USTEKINUMAB
     Route: 065
     Dates: start: 20211220, end: 20211220
  17. STELARA [Suspect]
     Active Substance: USTEKINUMAB
     Route: 065
     Dates: start: 20220714, end: 20231130
  18. STELARA [Suspect]
     Active Substance: USTEKINUMAB
     Route: 065
     Dates: start: 20240321, end: 20240815
  19. STELARA [Suspect]
     Active Substance: USTEKINUMAB
     Route: 065
     Dates: start: 20241211

REACTIONS (1)
  - Osteoarthritis [Unknown]

NARRATIVE: CASE EVENT DATE: 20240318
